FAERS Safety Report 6332191-X (Version None)
Quarter: 2009Q3

REPORT INFORMATION
  Report Type: 
  Country: None (occurrence: None)
  Receive Date: 20090827
  Receipt Date: 20090827
  Transmission Date: 20100115
  Serious: Yes (Hospitalization)
  Sender: FDA-Public Use
  Company Number: None

PATIENT
  Age: 42 Year
  Sex: Male
  Weight: 101.3 kg

DRUGS (1)
  1. FLUDEOXYGLUCOSE [Suspect]
     Indication: COMPUTERISED TOMOGRAM
     Dates: start: 20090824, end: 20090824

REACTIONS (4)
  - EYE PRURITUS [None]
  - LACRIMATION INCREASED [None]
  - OEDEMA [None]
  - RASH [None]
